FAERS Safety Report 8847389 (Version 5)
Quarter: 2014Q1

REPORT INFORMATION
  Report Type: Report from Study
  Country: US (occurrence: US)
  Receive Date: 20121018
  Receipt Date: 20140306
  Transmission Date: 20141002
  Serious: Yes (Hospitalization)
  Sender: FDA-Public Use
  Company Number: US-ACTELION-A-NJ2012-72697

PATIENT
  Age: 79 Year
  Sex: Female

DRUGS (2)
  1. TRACLEER [Suspect]
     Indication: PULMONARY ARTERIAL HYPERTENSION
     Dosage: UNK
     Route: 048
     Dates: start: 20120518
  2. PRADAXA [Concomitant]

REACTIONS (5)
  - Emphysema [Unknown]
  - Dyspnoea [Unknown]
  - Wheezing [Unknown]
  - Heart rate increased [Unknown]
  - Pneumonia [Recovering/Resolving]
